FAERS Safety Report 7670166-9 (Version None)
Quarter: 2011Q3

REPORT INFORMATION
  Report Type: 
  Country: None (occurrence: None)
  Receive Date: 20110808
  Receipt Date: 20110729
  Transmission Date: 20111222
  Serious: Yes (Other)
  Sender: FDA-Public Use
  Company Number: US-ASTRAZENECA-2009SE10759

PATIENT
  Age: 85 Year
  Sex: Female

DRUGS (4)
  1. ZOMIG [Suspect]
     Route: 048
  2. SYMBICORT [Suspect]
     Route: 055
  3. NEXIUM [Suspect]
     Route: 048
  4. TOPROL-XL [Suspect]
     Route: 048

REACTIONS (5)
  - AMNESIA [None]
  - WRONG DRUG ADMINISTERED [None]
  - UPPER LIMB FRACTURE [None]
  - LARYNGITIS [None]
  - NERVE COMPRESSION [None]
